FAERS Safety Report 9243691 (Version 2)
Quarter: 2013Q3

REPORT INFORMATION
  Report Type: Spontaneous
  Country: US (occurrence: US)
  Receive Date: 20130422
  Receipt Date: 20130826
  Transmission Date: 20140515
  Serious: No
  Sender: FDA-Public Use
  Company Number: US-BIOGENIDEC-2013BI035567

PATIENT
  Age: 49 Year
  Sex: Female

DRUGS (3)
  1. AVONEX [Suspect]
     Indication: MULTIPLE SCLEROSIS
     Route: 030
     Dates: start: 20020101
  2. AVONEX [Suspect]
     Indication: MULTIPLE SCLEROSIS
     Route: 030
  3. ALAVERT D [Concomitant]
     Indication: SEASONAL ALLERGY
     Route: 048

REACTIONS (11)
  - Hypertension [Recovered/Resolved]
  - Vitamin D decreased [Not Recovered/Not Resolved]
  - Neuralgia [Recovered/Resolved]
  - Vitamin B12 decreased [Not Recovered/Not Resolved]
  - Mole excision [Recovered/Resolved]
  - Dysphagia [Not Recovered/Not Resolved]
  - Staphylococcal infection [Not Recovered/Not Resolved]
  - Erythema [Recovered/Resolved]
  - Pain [Recovered/Resolved]
  - Influenza like illness [Not Recovered/Not Resolved]
  - Pyrexia [Recovered/Resolved]
